FAERS Safety Report 17563451 (Version 2)
Quarter: 2020Q2

REPORT INFORMATION
  Report Type: Report from Study
  Country: BR (occurrence: BR)
  Receive Date: 20200319
  Receipt Date: 20200526
  Transmission Date: 20200713
  Serious: Yes (Hospitalization)
  Sender: FDA-Public Use
  Company Number: BR-BIOGEN-2020BI00849187

PATIENT
  Sex: Female

DRUGS (5)
  1. AVONEX PEN [Suspect]
     Active Substance: INTERFERON BETA-1A
  2. AVONEX PEN [Suspect]
     Active Substance: INTERFERON BETA-1A
  3. LEVOTHYROXINE. [Concomitant]
     Active Substance: LEVOTHYROXINE
     Indication: HYPOTHYROIDISM
     Route: 065
  4. AVONEX PEN [Suspect]
     Active Substance: INTERFERON BETA-1A
  5. AVONEX PEN [Suspect]
     Active Substance: INTERFERON BETA-1A
     Indication: MULTIPLE SCLEROSIS
     Route: 030
     Dates: start: 20120402, end: 20150405

REACTIONS (9)
  - Hypoaesthesia [Not Recovered/Not Resolved]
  - Multiple sclerosis relapse [Recovered/Resolved with Sequelae]
  - Optic atrophy [Recovered/Resolved with Sequelae]
  - Multiple sclerosis [Unknown]
  - Hyperhidrosis [Unknown]
  - Muscular weakness [Not Recovered/Not Resolved]
  - Stress [Unknown]
  - Memory impairment [Recovered/Resolved with Sequelae]
  - Eye disorder [Unknown]

NARRATIVE: CASE EVENT DATE: 2013
